FAERS Safety Report 4818205-4 (Version None)
Quarter: 2005Q4

REPORT INFORMATION
  Report Type: 
  Country: None (occurrence: None)
  Receive Date: 20051101
  Receipt Date: 20051101
  Transmission Date: 20060501
  Serious: No
  Sender: FDA-Public Use
  Company Number: None

PATIENT
  Age: 61 Year
  Sex: Female
  Weight: 68.0396 kg

DRUGS (7)
  1. HUMIRA [Suspect]
     Indication: RHEUMATOID ARTHRITIS
     Dosage: 40MG   EVERY OTHER WEEK  SQ
     Route: 058
     Dates: start: 20050714, end: 20051031
  2. METHOTREXATE [Concomitant]
  3. PREDNISONE [Concomitant]
  4. DARVOCET [Concomitant]
  5. MOBIC [Concomitant]
  6. FOLIC ACID [Concomitant]
  7. EVISTA [Concomitant]

REACTIONS (1)
  - RASH [None]
